FAERS Safety Report 7541910-6 (Version None)
Quarter: 2011Q2

REPORT INFORMATION
  Report Type: 
  Country: None (occurrence: None)
  Receive Date: 20110613
  Receipt Date: 20110606
  Transmission Date: 20111010
  Serious: Yes (Other)
  Sender: FDA-Public Use
  Company Number: DE-US-EMD SERONO, INC.-7038991

PATIENT
  Sex: Male

DRUGS (2)
  1. REBIF [Suspect]
     Indication: MULTIPLE SCLEROSIS
     Route: 058
     Dates: start: 20110113, end: 20110501
  2. REBIF [Suspect]
     Route: 058
     Dates: start: 20110501

REACTIONS (5)
  - ANGINA PECTORIS [None]
  - EPISTAXIS [None]
  - MUSCLE SPASMS [None]
  - RASH [None]
  - BLOOD PRESSURE INCREASED [None]
